FAERS Safety Report 6645875-0 (Version None)
Quarter: 2010Q1

REPORT INFORMATION
  Report Type: 
  Country: None (occurrence: None)
  Receive Date: 20100323
  Receipt Date: 20100310
  Transmission Date: 20100710
  Serious: Yes (Hospitalization, Congenital Anomaly)
  Sender: FDA-Public Use
  Company Number: PHEH2010US02723

PATIENT
  Sex: Male
  Weight: 58.6 kg

DRUGS (4)
  1. EXJADE [Suspect]
     Indication: SICKLE CELL ANAEMIA
     Dosage: 1500 MG, QD
     Route: 048
     Dates: start: 20090602
  2. EXJADE [Suspect]
     Indication: IRON OVERLOAD
  3. FLOVENT [Concomitant]
     Dosage: 110 UG, BID
     Route: 048
  4. ALBUTEROL [Concomitant]
     Dosage: 2 PUFFS EVERY 4 PRN
     Route: 048

REACTIONS (6)
  - ABDOMINAL PAIN [None]
  - ADENOTONSILLECTOMY [None]
  - CHOLECYSTECTOMY [None]
  - CHOLELITHIASIS [None]
  - HERNIA CONGENITAL [None]
  - HYPERBILIRUBINAEMIA [None]
